FAERS Safety Report 9036944 (Version 1)
Quarter: 2012Q4

REPORT INFORMATION
  Report Type: Spontaneous
  Country: US (occurrence: None)
  Receive Date: 20121221
  Receipt Date: 20121221
  Transmission Date: 20130627
  Serious: No
  Sender: FDA-Public Use
  Company Number: US-145363

PATIENT
  Age: 53 Year
  Sex: Female

DRUGS (1)
  1. WINRHO SDF LIQUID [Suspect]
     Indication: AUTOIMMUNE THROMBOCYTOPENIA
     Dosage: Total, Requiring dosing every 3 to 6 months
     Route: 042
     Dates: start: 20120712, end: 20120712

REACTIONS (9)
  - Back pain [None]
  - Chills [None]
  - Nausea [None]
  - Dyspnoea [None]
  - Haemoglobin decreased [None]
  - Blood lactate dehydrogenase increased [None]
  - Blood bilirubin increased [None]
  - Haptoglobin increased [None]
  - Blood urine present [None]
